FAERS Safety Report 4378156-9 (Version None)
Quarter: 2004Q2

REPORT INFORMATION
  Report Type: 
  Country: None (occurrence: None)
  Receive Date: 20040609
  Receipt Date: 20040521
  Transmission Date: 20050107
  Serious: Yes (Hospitalization)
  Sender: FDA-Public Use
  Company Number: DE_040513641

PATIENT
  Age: 68 Year
  Sex: Male

DRUGS (2)
  1. GEMZAR [Suspect]
     Indication: PANCREATIC CARCINOMA
     Dosage: 1940 MG
     Dates: start: 20040311
  2. BLINDED STUDY DRUG [Suspect]
     Indication: CACHEXIA
     Dates: start: 20040305

REACTIONS (2)
  - PLEURAL EFFUSION [None]
  - THROMBOCYTOPENIA [None]
